FAERS Safety Report 7417733-5 (Version None)
Quarter: 2011Q2

REPORT INFORMATION
  Report Type: 
  Country: None (occurrence: None)
  Receive Date: 20110415
  Receipt Date: 20110412
  Transmission Date: 20111010
  Serious: Yes (Death)
  Sender: FDA-Public Use
  Company Number: PHHY2011NL30587

PATIENT
  Sex: Female

DRUGS (3)
  1. SODIUM CHLORIDE [Concomitant]
     Dosage: 100 ML, UNK
  2. ZOMETA [Suspect]
     Indication: BREAST CANCER METASTATIC
     Dosage: 4MG/5ML, UNK
     Dates: start: 20090701
  3. ZOMETA [Suspect]
     Dosage: 4MG/5ML, UNK
     Dates: start: 20110310

REACTIONS (1)
  - DEATH [None]
